FAERS Safety Report 6695491-X (Version None)
Quarter: 2010Q2

REPORT INFORMATION
  Report Type: 
  Country: None (occurrence: None)
  Receive Date: 20100426
  Receipt Date: 20100412
  Transmission Date: 20101027
  Serious: Yes (Other)
  Sender: FDA-Public Use
  Company Number: US-ASTRAZENECA-2009UW17464

PATIENT
  Sex: Male

DRUGS (3)
  1. SEROQUEL [Suspect]
     Indication: SCHIZOPHRENIA
     Dosage: 25 MG TO 125 MG
     Route: 048
     Dates: start: 20010820
  2. RISPERIDONE [Concomitant]
     Dosage: 1 MG TO 4 MG
     Route: 048
     Dates: start: 20010813
  3. ZIPRASIDONE HCL [Concomitant]
     Route: 048
     Dates: start: 20020919

REACTIONS (3)
  - DIABETES MELLITUS [None]
  - ERECTILE DYSFUNCTION [None]
  - NEUROPATHY PERIPHERAL [None]
